FAERS Safety Report 15615463 (Version 1)
Quarter: 2018Q4

REPORT INFORMATION
  Report Type: Spontaneous
  Country: JP (occurrence: JP)
  Receive Date: 20181114
  Receipt Date: 20181114
  Transmission Date: 20190205
  Serious: Yes (Death, Other)
  Sender: FDA-Public Use
  Company Number: JP-TEVA-2018-JP-976048

PATIENT
  Age: 77 Year
  Sex: Female

DRUGS (1)
  1. AZILECT [Suspect]
     Active Substance: RASAGILINE MESYLATE
     Indication: PARKINSON^S DISEASE
     Route: 048
     Dates: start: 201806, end: 201806

REACTIONS (8)
  - Chest discomfort [Unknown]
  - Aggression [Unknown]
  - Loss of consciousness [Unknown]
  - Sudden death [Fatal]
  - Pyrexia [Unknown]
  - Seizure [Unknown]
  - Dehydration [Unknown]
  - Blindness [Unknown]

NARRATIVE: CASE EVENT DATE: 201806
